FAERS Safety Report 5558205-2 (Version None)
Quarter: 2007Q4

REPORT INFORMATION
  Report Type: 
  Country: None (occurrence: None)
  Receive Date: 20071214
  Receipt Date: 20071205
  Transmission Date: 20080405
  Serious: Yes (Death, Hospitalization, Disabling, Other)
  Sender: FDA-Public Use
  Company Number: US-PFIZER INC-2007077591

PATIENT
  Sex: Female
  Weight: 94.3 kg

DRUGS (1)
  1. CELEBREX [Suspect]
     Indication: PAIN
     Route: 048
     Dates: start: 20041025, end: 20050512

REACTIONS (4)
  - CARDIAC FAILURE CONGESTIVE [None]
  - CARDIOVASCULAR DISORDER [None]
  - CEREBROVASCULAR ACCIDENT [None]
  - MYOCARDIAL INFARCTION [None]
